FAERS Safety Report 8459147-5 (Version None)
Quarter: 2012Q2

REPORT INFORMATION
  Report Type: 
  Country: None (occurrence: None)
  Receive Date: 20120622
  Receipt Date: 20120613
  Transmission Date: 20120825
  Serious: Yes (Hospitalization)
  Sender: FDA-Public Use
  Company Number: SE-ASTRAZENECA-2012SE30422

PATIENT
  Age: 16452 Day
  Sex: Female

DRUGS (7)
  1. SUFENTANIL CITRATE [Concomitant]
  2. MARCAINE [Concomitant]
     Dosage: TWO BLOCKS
     Route: 008
  3. XYLOCAINE [Suspect]
     Route: 037
     Dates: start: 20120510, end: 20120510
  4. OXYCONTIN [Concomitant]
     Indication: NEURALGIA
  5. CATAPRES [Concomitant]
  6. GABAPENTIN [Concomitant]
     Indication: NEURALGIA
  7. AMITRIPTYLINE HCL [Concomitant]
     Indication: NEURALGIA

REACTIONS (1)
  - DRUG EFFECT PROLONGED [None]
